FAERS Safety Report 6563309-1 (Version None)
Quarter: 2010Q1

REPORT INFORMATION
  Report Type: 
  Country: None (occurrence: None)
  Receive Date: 20100130
  Receipt Date: 20091208
  Transmission Date: 20100710
  Serious: Yes (Hospitalization)
  Sender: FDA-Public Use
  Company Number: US-ABBOTT-09P-163-0613807-00

PATIENT
  Sex: Male
  Weight: 67.192 kg

DRUGS (3)
  1. HUMIRA [Suspect]
     Indication: CROHN'S DISEASE
     Dates: start: 20080601, end: 20090601
  2. HUMIRA [Suspect]
     Route: 058
     Dates: start: 20090601, end: 20091202
  3. PREDNISONE [Concomitant]
     Indication: DRUG USE FOR UNKNOWN INDICATION

REACTIONS (14)
  - ABDOMINAL DISTENSION [None]
  - ACTINIC KERATOSIS [None]
  - ASTHMA [None]
  - BLOOD GLUCOSE INCREASED [None]
  - DRUG EFFECT DECREASED [None]
  - H1N1 INFLUENZA [None]
  - HEPATIC ENZYME INCREASED [None]
  - HEPATIC MASS [None]
  - INFLUENZA LIKE ILLNESS [None]
  - MUSCULOSKELETAL PAIN [None]
  - NEPHROLITHIASIS [None]
  - ORAL FUNGAL INFECTION [None]
  - PAPILLOMA VIRAL INFECTION [None]
  - SKIN PAPILLOMA [None]
